FAERS Safety Report 9022477 (Version 3)
Quarter: 2013Q4

REPORT INFORMATION
  Report Type: Spontaneous
  Country: US (occurrence: US)
  Receive Date: 20130118
  Receipt Date: 20131128
  Transmission Date: 20140711
  Serious: No
  Sender: FDA-Public Use
  Company Number: US-JNJFOC-20130104195

PATIENT
  Sex: Male
  Weight: 66.23 kg

DRUGS (5)
  1. DURAGESIC [Suspect]
     Indication: SURGERY
     Route: 062
     Dates: start: 201208
  2. UNKNOWN MEDICATION [Concomitant]
     Indication: ANTIDEPRESSANT THERAPY
     Route: 065
  3. UNKNOWN MEDICATION [Concomitant]
     Indication: HYPERSOMNIA
     Route: 065
  4. UNKNOWN MEDICATION [Concomitant]
     Indication: NAUSEA
     Route: 065
  5. UNKNOWN MEDICATION [Concomitant]
     Indication: GASTRIC DISORDER
     Route: 065

REACTIONS (6)
  - Pain [Not Recovered/Not Resolved]
  - Wrong technique in drug usage process [Unknown]
  - Application site rash [Not Recovered/Not Resolved]
  - Oedema peripheral [Not Recovered/Not Resolved]
  - Joint swelling [Not Recovered/Not Resolved]
  - Product quality issue [Unknown]
